FAERS Safety Report 8046598-6 (Version None)
Quarter: 2012Q1

REPORT INFORMATION
  Report Type: 
  Country: None (occurrence: None)
  Receive Date: 20120113
  Receipt Date: 20120106
  Transmission Date: 20120608
  Serious: Yes (Hospitalization, Other)
  Sender: FDA-Public Use
  Company Number: US-SANOFI-AVENTIS-2012SA001436

PATIENT
  Age: 67 Year
  Sex: Male

DRUGS (1)
  1. PLAVIX [Suspect]
     Dates: start: 20010101

REACTIONS (10)
  - STENT PLACEMENT [None]
  - HYPERSENSITIVITY [None]
  - GASTROOESOPHAGITIS [None]
  - VISION BLURRED [None]
  - GASTROENTERITIS [None]
  - VISUAL IMPAIRMENT [None]
  - ATRIAL FIBRILLATION [None]
  - DUODENITIS [None]
  - HYPERTENSION [None]
  - EYE HAEMORRHAGE [None]
